FAERS Safety Report 5664744-6 (Version None)
Quarter: 2008Q1

REPORT INFORMATION
  Report Type: 
  Country: None (occurrence: None)
  Receive Date: 20080314
  Receipt Date: 20080307
  Transmission Date: 20080703
  Serious: Yes (Other)
  Sender: FDA-Public Use
  Company Number: JP-ASTRAZENECA-2008AP01852

PATIENT
  Age: 50 Year
  Sex: Female

DRUGS (2)
  1. SPLENDIL [Suspect]
     Indication: HYPERTENSION
     Dosage: DOSE UNKNOWN, LONG TERM USE
     Route: 048
  2. GABAPEN [Concomitant]
     Indication: EPILEPSY
     Dosage: DOSE UNKNOWN
     Route: 048

REACTIONS (1)
  - RHABDOMYOLYSIS [None]
